FAERS Safety Report 9516503 (Version 1)
Quarter: 2013Q1

REPORT INFORMATION
  Report Type: Spontaneous
  Country: US (occurrence: None)
  Receive Date: 20130305
  Receipt Date: 20130305
  Transmission Date: 20140127
  Serious: Yes (Hospitalization)
  Sender: FDA-Public Use
  Company Number: 163-21880-12011880

PATIENT
  Age: 49 Year
  Sex: Female
  Weight: 55.34 kg

DRUGS (11)
  1. REVLIMID [Suspect]
     Indication: PLASMA CELL MYELOMA
     Dosage: 5 MG, M, W,F, PO
     Route: 048
     Dates: start: 20101211
  2. VANCOMYCIN (VANCOMYCIN) [Concomitant]
  3. QUESTRAN (COLESTYRAMINE) [Concomitant]
  4. CALCITROL (CALCITROL) [Concomitant]
  5. FLAXSEED OIL )(LINSEED OIL) [Concomitant]
  6. MS CONTIN [Concomitant]
  7. VITAMINS [Concomitant]
  8. NEXIUM [Concomitant]
  9. POTASSIUM (POTASSIUM) [Concomitant]
  10. SODIUM BICARBONATE (SODIUM BICARBONATE) [Concomitant]
  11. VALTREX (VALACICLOVIR HYDROCHLORIDE) [Concomitant]

REACTIONS (1)
  - Clostridium difficile infection [None]
